FAERS Safety Report 5036183-2 (Version None)
Quarter: 2006Q2

REPORT INFORMATION
  Report Type: 
  Country: None (occurrence: None)
  Receive Date: 20060531
  Receipt Date: 20050418
  Transmission Date: 20061013
  Serious: Yes (Other)
  Sender: FDA-Public Use
  Company Number: 2005019094

PATIENT
  Age: 72 Year
  Sex: Female

DRUGS (3)
  1. COLESTIPOL HCL [Suspect]
     Indication: DYSLIPIDAEMIA
     Dosage: 4 GRAM (1 GRAM, 2 IN 2 D), ORAL
     Route: 048
     Dates: start: 20041103
  2. COLESTIPOL HCL [Suspect]
     Indication: HYPERCHOLESTEROLAEMIA
     Dosage: 4 GRAM (1 GRAM, 2 IN 2 D), ORAL
     Route: 048
     Dates: start: 20041103
  3. IMIPRAMINE [Concomitant]

REACTIONS (3)
  - ABDOMINAL DISTENSION [None]
  - ABDOMINAL PAIN UPPER [None]
  - DIARRHOEA HAEMORRHAGIC [None]
